FAERS Safety Report 8770368 (Version 2)
Quarter: 2012Q4

REPORT INFORMATION
  Report Type: 
  Country: US (occurrence: US)
  Receive Date: 20120906
  Receipt Date: 20120925
  Transmission Date: 20130627
  Serious: Yes (Hospitalization)
  Sender: FDA-Public Use
  Company Number: US-PERRIGO-12US007506

PATIENT
  Age: 72 None
  Sex: Female
  Weight: 77.1 kg

DRUGS (6)
  1. POLYETHYLENE GLYCOL [Suspect]
     Indication: CONSTIPATION
     Dosage: 17 g, qd
     Route: 048
     Dates: start: 200907, end: 201007
  2. POLYETHYLENE GLYCOL [Suspect]
     Dosage: 17g, qd to bid PRN
     Route: 048
     Dates: start: 201007
  3. B12 [Concomitant]
     Indication: ANAEMIA VITAMIN B12 DEFICIENCY
     Dosage: UNK, UNK
     Route: 030
  4. VITAMINS [Concomitant]
     Indication: SUPPLEMENTATION THERAPY
     Dosage: UNK, UNK
     Route: 048
  5. IMDUR [Concomitant]
     Indication: HYPERTENSION
     Dosage: UNK, UNK
     Route: 048
  6. AVALIDE [Concomitant]
     Indication: HYPERTENSION
     Dosage: UNK, UNK
     Route: 048

REACTIONS (8)
  - Rotator cuff syndrome [Unknown]
  - Muscle rupture [Unknown]
  - Blood urea increased [Unknown]
  - Back pain [Not Recovered/Not Resolved]
  - Arthralgia [Unknown]
  - Abdominal distension [Unknown]
  - Incorrect drug administration duration [Unknown]
  - Inappropriate schedule of drug administration [Unknown]
